FAERS Safety Report 5927955-8 (Version None)
Quarter: 2008Q3

REPORT INFORMATION
  Report Type: 
  Country: None (occurrence: None)
  Receive Date: 20080923
  Receipt Date: 20070925
  Transmission Date: 20090109
  Serious: Yes (Hospitalization)
  Sender: FDA-Public Use
  Company Number: WAES 0709USA04296

PATIENT

DRUGS (1)
  1. VYTORIN [Suspect]
     Dosage: PO
     Route: 048
     Dates: start: 20070301

REACTIONS (2)
  - BACK PAIN [None]
  - MYALGIA [None]
